FAERS Safety Report 5449593-6 (Version None)
Quarter: 2007Q3

REPORT INFORMATION
  Report Type: 
  Country: None (occurrence: None)
  Receive Date: 20070910
  Receipt Date: 20070827
  Transmission Date: 20080115
  Serious: Yes (Hospitalization)
  Sender: FDA-Public Use
  Company Number: 160729ISR

PATIENT
  Age: 55 Year
  Sex: Male

DRUGS (5)
  1. FLUOROURACIL INJ [Suspect]
     Indication: METASTATIC GASTRIC CANCER
     Dosage: 1500 MG/M2 (ON DAYS, 1, 8, 15, 22, 29, 36, OF 6 WEEK CYCLE) (1500 MG/M2) INTRAVENOUS
     Route: 042
     Dates: start: 20070503
  2. FOLINIC ACID [Suspect]
     Indication: METASTATIC GASTRIC CANCER
     Dosage: 200 MG/M2 (ON DAYS 1, 8, 15, 22, 29, 36 OF 6-WEEK CYCLE) (200 MG/M2) INTRAVENOUS
     Route: 042
     Dates: start: 20070503
  3. IRINOTECAN HCL [Suspect]
     Indication: METASTATIC GASTRIC CANCER
     Dosage: 80 MG/M2 (ON DAYS 1, 8, 15, 22, 29, 36 OF 6-WEEK CYCLE) INTRAVENOUS
     Route: 042
  4. CETUXIMAB [Suspect]
     Indication: METASTATIC GASTRIC CANCER
     Dosage: (400 MG/M2) INTRAVENOUS BOLUS
     Route: 040
     Dates: start: 20070503, end: 20070503
  5. CETUXIMAB [Suspect]
     Dosage: 250 MG/2 (WEEKLY) INTRAVENOUS
     Route: 042
     Dates: start: 20070503

REACTIONS (1)
  - PELVIC VENOUS THROMBOSIS [None]
